FAERS Safety Report 7245868-9 (Version None)
Quarter: 2011Q1

REPORT INFORMATION
  Report Type: 
  Country: None (occurrence: None)
  Receive Date: 20110126
  Receipt Date: 20110113
  Transmission Date: 20110831
  Serious: Yes (Other)
  Sender: FDA-Public Use
  Company Number: GB-ELI_LILLY_AND_COMPANY-GB201010005479

PATIENT
  Sex: Male
  Weight: 54.6 kg

DRUGS (2)
  1. STRATTERA [Suspect]
     Dosage: 80 MG, DAILY (1/D)
     Route: 048
     Dates: start: 20100701, end: 20101005
  2. STRATTERA [Suspect]
     Indication: ATTENTION DEFICIT/HYPERACTIVITY DISORDER
     Dosage: 60 MG, DAILY (1/D)
     Route: 048
     Dates: start: 20081014, end: 20100630

REACTIONS (5)
  - ANGER [None]
  - INTENTIONAL OVERDOSE [None]
  - SELF-INJURIOUS IDEATION [None]
  - SCAR [None]
  - INTENTIONAL SELF-INJURY [None]
